FAERS Safety Report 17553679 (Version 2)
Quarter: 2020Q2

REPORT INFORMATION
  Report Type: Report from Study
  Country: US (occurrence: US)
  Receive Date: 20200317
  Receipt Date: 20200511
  Transmission Date: 20200713
  Serious: No
  Sender: FDA-Public Use
  Company Number: NVSC2020US074886

PATIENT
  Sex: Male

DRUGS (1)
  1. COSENTYX [Suspect]
     Active Substance: SECUKINUMAB
     Indication: PSORIATIC ARTHROPATHY
     Route: 065

REACTIONS (2)
  - Arthritis [Not Recovered/Not Resolved]
  - Weight decreased [Not Recovered/Not Resolved]
